FAERS Safety Report 17446148 (Version 7)
Quarter: 2024Q1

REPORT INFORMATION
  Report Type: Report from Study
  Country: US (occurrence: US)
  Receive Date: 20200221
  Receipt Date: 20240206
  Transmission Date: 20240409
  Serious: No
  Sender: FDA-Public Use
  Company Number: US-SA-2020SA042328

PATIENT
  Age: 84 Year
  Sex: Female

DRUGS (3)
  1. DUPILUMAB [Suspect]
     Active Substance: DUPILUMAB
     Indication: Dermatitis atopic
     Dosage: 600 MG, 1X
     Route: 058
  2. DUPILUMAB [Suspect]
     Active Substance: DUPILUMAB
     Dosage: 300 MG, QOW
     Route: 058
     Dates: start: 20191213
  3. XYLOMETAZOLINE HYDROCHLORIDE [Concomitant]
     Active Substance: XYLOMETAZOLINE HYDROCHLORIDE

REACTIONS (12)
  - Illness [Unknown]
  - Malaise [Unknown]
  - Alopecia [Unknown]
  - Rash [Recovering/Resolving]
  - Dermatitis atopic [Unknown]
  - Pruritus [Recovering/Resolving]
  - Contusion [Unknown]
  - Rash pustular [Unknown]
  - Pain [Unknown]
  - Skin ulcer [Unknown]
  - Product storage error [Unknown]
  - Product dose omission in error [Unknown]

NARRATIVE: CASE EVENT DATE: 20200101
